FAERS Safety Report 12704478 (Version 1)
Quarter: 2016Q3

REPORT INFORMATION
  Report Type: Spontaneous
  Country: US (occurrence: US)
  Receive Date: 20160831
  Receipt Date: 20160831
  Transmission Date: 20161109
  Serious: No
  Sender: FDA-Public Use
  Company Number: US-BAYER-2016-162097

PATIENT
  Age: 19 Month
  Sex: Male
  Weight: 11.79 kg

DRUGS (1)
  1. MIRALAX [Suspect]
     Active Substance: POLYETHYLENE GLYCOL 3350
     Indication: CONSTIPATION
     Dosage: 0.5 DF, QD
     Route: 048
     Dates: start: 20160618

REACTIONS (3)
  - Product use issue [None]
  - Off label use [None]
  - Prescribed underdose [None]

NARRATIVE: CASE EVENT DATE: 20160618
